FAERS Safety Report 7248460-5 (Version None)
Quarter: 2011Q1

REPORT INFORMATION
  Report Type: 
  Country: None (occurrence: None)
  Receive Date: 20110127
  Receipt Date: 20110124
  Transmission Date: 20110831
  Serious: Yes (Other)
  Sender: FDA-Public Use
  Company Number: GB-PFIZER INC-2011017104

PATIENT
  Age: 64 Year
  Sex: Female

DRUGS (3)
  1. CHAMPIX [Suspect]
     Dosage: 1 MG, 2X/DAY
     Dates: start: 20101110, end: 20101123
  2. LEVOTHYROXINE SODIUM [Concomitant]
     Indication: HYPOTHYROIDISM
     Dosage: 150 MG, UNK
  3. CHAMPIX [Suspect]
     Indication: SMOKING CESSATION THERAPY
     Dosage: 1 MG, 1X/DAY
     Route: 048
     Dates: start: 20101101, end: 20101101

REACTIONS (3)
  - NAUSEA [None]
  - PRURITUS [None]
  - TEARFULNESS [None]
